FAERS Safety Report 7176277-9 (Version None)
Quarter: 2010Q4

REPORT INFORMATION
  Report Type: 
  Country: None (occurrence: None)
  Receive Date: 20101215
  Receipt Date: 20101215
  Transmission Date: 20110411
  Serious: Yes (Other)
  Sender: FDA-Public Use
  Company Number: None

PATIENT
  Sex: Male
  Weight: 113.3993 kg

DRUGS (3)
  1. TAMSULOSIN HCL [Suspect]
     Indication: PROSTATOMEGALY
     Dosage: ONE CAPSULE DAILY 1/2 OR AFTER EVE. MEAL BY MOUTH
     Route: 048
     Dates: start: 20101123, end: 20101125
  2. FINASTERIDE [Suspect]
     Indication: PROSTATIC DISORDER
     Dosage: ONE TABLET DAILY BY MOUTH
     Route: 048
     Dates: start: 20101123, end: 20101125
  3. FINASTERIDE [Suspect]
     Indication: SWELLING
     Dosage: ONE TABLET DAILY BY MOUTH
     Route: 048
     Dates: start: 20101123, end: 20101125

REACTIONS (4)
  - ASTHENIA [None]
  - DIZZINESS [None]
  - OROPHARYNGEAL PAIN [None]
  - SOMNOLENCE [None]
